FAERS Safety Report 7530141-1 (Version None)
Quarter: 2011Q2

REPORT INFORMATION
  Report Type: 
  Country: None (occurrence: None)
  Receive Date: 20110606
  Receipt Date: 20110606
  Transmission Date: 20111010
  Serious: No
  Sender: FDA-Public Use
  Company Number: None

PATIENT
  Sex: Female
  Weight: 83.0083 kg

DRUGS (3)
  1. ALENDRONATE SODIUM [Suspect]
  2. ACTONEL [Suspect]
  3. BONIVA [Suspect]

REACTIONS (2)
  - FEMUR FRACTURE [None]
  - PATHOLOGICAL FRACTURE [None]
